FAERS Safety Report 15149201 (Version 1)
Quarter: 2018Q3

REPORT INFORMATION
  Report Type: Spontaneous
  Country: US (occurrence: US)
  Receive Date: 20180716
  Receipt Date: 20180716
  Transmission Date: 20181010
  Serious: Yes (Death, Other)
  Sender: FDA-Public Use
  Company Number: US-INTERCEPT-PMOCA2018001075

PATIENT

DRUGS (1)
  1. OCALIVA [Suspect]
     Active Substance: OBETICHOLIC ACID
     Indication: PRIMARY BILIARY CHOLANGITIS
     Dosage: 5 MG, QD
     Route: 048
     Dates: start: 201801, end: 2018

REACTIONS (4)
  - Pneumonia [Unknown]
  - Colon cancer [Unknown]
  - Renal failure [Unknown]
  - Post procedural complication [Fatal]

NARRATIVE: CASE EVENT DATE: 2018
